FAERS Safety Report 9620079 (Version 2)
Quarter: 2013Q4

REPORT INFORMATION
  Report Type: Spontaneous
  Country: US (occurrence: US)
  Receive Date: 20131014
  Receipt Date: 20131025
  Transmission Date: 20140711
  Serious: Yes (Other)
  Sender: FDA-Public Use
  Company Number: US-PFIZER INC-2013289731

PATIENT
  Age: 50 Year
  Sex: Female

DRUGS (1)
  1. XALATAN [Suspect]
     Dosage: UNK

REACTIONS (6)
  - Intestinal obstruction [Unknown]
  - Back disorder [Unknown]
  - Mental impairment [Unknown]
  - Gait disturbance [Unknown]
  - Tremor [Unknown]
  - Tremor [Unknown]
